FAERS Safety Report 23232807 (Version 1)
Quarter: 2023Q4

REPORT INFORMATION
  Report Type: Spontaneous
  Country: US (occurrence: US)
  Receive Date: 20231128
  Receipt Date: 20231128
  Transmission Date: 20240110
  Serious: No
  Sender: FDA-Public Use
  Company Number: US-AMGEN-USASP2023208525

PATIENT
  Age: 74 Year
  Sex: Female

DRUGS (1)
  1. KANJINTI [Suspect]
     Active Substance: TRASTUZUMAB-ANNS
     Indication: Endometrial cancer
     Dosage: DOSE ORDERED: 399 MILLIGRAM AND REQUESTED REPLACEMENT OF ONE 420MG VIAL AS DOSE WAS NOT ADMINISTERED
     Route: 065

REACTIONS (2)
  - Off label use [Unknown]
  - Palpitations [Unknown]

NARRATIVE: CASE EVENT DATE: 20231113
